FAERS Safety Report 10242714 (Version 2)
Quarter: 2014Q2

REPORT INFORMATION
  Report Type: Spontaneous
  Country: US (occurrence: US)
  Receive Date: 20140617
  Receipt Date: 20140617
  Transmission Date: 20141212
  Serious: Yes (Other)
  Sender: FDA-Public Use
  Company Number: US-RB-067768-14

PATIENT
  Age: 32 Year
  Sex: Female

DRUGS (6)
  1. SUBOXONE TABLET [Suspect]
     Route: 060
     Dates: start: 2006, end: 2006
  2. SUBOXONE TABLET [Suspect]
     Indication: DRUG DEPENDENCE
     Dosage: SELF TAPERING
     Route: 060
     Dates: start: 2006, end: 201004
  3. BUPRENORPHINE NALOXONE GENERIC [Suspect]
     Indication: DRUG DEPENDENCE
     Route: 060
     Dates: start: 201004, end: 201404
  4. BUPRENORPHINE NALOXONE GENERIC [Suspect]
     Dosage: SELF TAPERING
     Route: 060
     Dates: start: 201404, end: 201404
  5. BUPRENORPHINE NALOXONE GENERIC [Suspect]
     Dosage: SELF TAPERING
     Route: 060
     Dates: start: 201404, end: 201404
  6. BENADRYL [Concomitant]
     Indication: HYPERSENSITIVITY
     Dosage: 2 TSP AS NEEDED
     Route: 048
     Dates: start: 2004

REACTIONS (15)
  - Intentional underdose [Recovered/Resolved]
  - Drug withdrawal syndrome [Recovered/Resolved]
  - Depression [Recovered/Resolved]
  - Suicidal ideation [Recovered/Resolved]
  - Pain [Recovered/Resolved]
  - Hyperhidrosis [Recovered/Resolved]
  - Vision blurred [Recovered/Resolved]
  - Dyspnoea [Recovered/Resolved]
  - Dysstasia [Recovered/Resolved]
  - Formication [Recovered/Resolved]
  - Headache [Recovered/Resolved]
  - Confusional state [Recovered/Resolved]
  - Decreased appetite [Recovered/Resolved]
  - Weight decreased [Recovered/Resolved]
  - Feeling abnormal [Recovered/Resolved]
